FAERS Safety Report 5730688-4 (Version None)
Quarter: 2008Q2

REPORT INFORMATION
  Report Type: 
  Country: None (occurrence: None)
  Receive Date: 20080505
  Receipt Date: 20080505
  Transmission Date: 20081010
  Serious: Yes (Life-Threatening, Hospitalization)
  Sender: FDA-Public Use
  Company Number: None

PATIENT
  Age: 59 Year
  Sex: Male
  Weight: 119.7496 kg

DRUGS (2)
  1. REVLIMID [Suspect]
     Indication: MULTIPLE MYELOMA
     Dosage: 25 MG DAILY PO
     Route: 048
     Dates: start: 20070614, end: 20070702
  2. DECADRON [Suspect]
     Dosage: DAILY PO
     Route: 048
     Dates: start: 20070614, end: 20070702

REACTIONS (1)
  - DEEP VEIN THROMBOSIS [None]
